FAERS Safety Report 7243158-1 (Version None)
Quarter: 2011Q1

REPORT INFORMATION
  Report Type: 
  Country: None (occurrence: None)
  Receive Date: 20110118
  Receipt Date: 20101019
  Transmission Date: 20110831
  Serious: Yes (Hospitalization)
  Sender: FDA-Public Use
  Company Number: None

PATIENT
  Age: 6 Year
  Sex: Male
  Weight: 16.7 kg

DRUGS (1)
  1. CLOFAZIMINE 50 MG NOVARTIS [Suspect]
     Indication: MYCOBACTERIUM AVIUM COMPLEX INFECTION
     Dosage: 50 MG PO EVERY OTHER DAY
     Route: 048
     Dates: start: 20101122, end: 20110112

REACTIONS (8)
  - LETHARGY [None]
  - HAEMATEMESIS [None]
  - DECREASED APPETITE [None]
  - VOMITING [None]
  - DEHYDRATION [None]
  - FAECES DISCOLOURED [None]
  - GASTROINTESTINAL HAEMORRHAGE [None]
  - FATIGUE [None]
